FAERS Safety Report 14858695 (Version 1)
Quarter: 2018Q2

REPORT INFORMATION
  Report Type: Spontaneous
  Country: US (occurrence: US)
  Receive Date: 20180420
  Receipt Date: 20180420
  Transmission Date: 20180711
  Serious: No
  Sender: FDA-Public Use
  Company Number: None

PATIENT
  Age: 48 Year
  Sex: Female
  Weight: 65.25 kg

DRUGS (2)
  1. IB [Concomitant]
  2. CIPROFLOXACIN. [Suspect]
     Active Substance: CIPROFLOXACIN
     Indication: URINARY TRACT INFECTION
     Dosage: ?          QUANTITY:12 TABLET(S); EVERY 12 HOURS ORAL?
     Route: 048
     Dates: start: 20180329, end: 20180404

REACTIONS (7)
  - Arthralgia [None]
  - Dry skin [None]
  - Headache [None]
  - Joint stiffness [None]
  - Pruritus [None]
  - Skin exfoliation [None]
  - Chest pain [None]

NARRATIVE: CASE EVENT DATE: 20180330
